FAERS Safety Report 9938511 (Version 1)
Quarter: 2014Q1

REPORT INFORMATION
  Report Type: Report from Study
  Country: US (occurrence: US)
  Receive Date: 20140303
  Receipt Date: 20140303
  Transmission Date: 20141002
  Serious: Yes (Other)
  Sender: FDA-Public Use
  Company Number: US-ROCHE-1345609

PATIENT
  Sex: Female

DRUGS (6)
  1. LUCENTIS [Suspect]
     Indication: DIABETIC RETINAL OEDEMA
     Dosage: OS
     Route: 050
  2. LUCENTIS [Suspect]
     Route: 050
  3. AVASTIN [Suspect]
     Indication: DIABETIC RETINAL OEDEMA
     Dosage: OD
     Route: 050
  4. PREDNISOLONE ACETATE [Concomitant]
     Dosage: 1 GTT OS QID 2WKS, BID 2 WKS
     Route: 047
     Dates: start: 20120315, end: 20120412
  5. BROMDAY [Concomitant]
     Dosage: OS 1 GTT QD X 3 WKS
     Route: 047
     Dates: start: 20120308, end: 20120329
  6. VIGAMOX [Concomitant]

REACTIONS (4)
  - Diabetic retinal oedema [Unknown]
  - Photopsia [Unknown]
  - Vitreous floaters [Unknown]
  - Overdose [Unknown]
